FAERS Safety Report 5267635-8 (Version None)
Quarter: 2007Q1

REPORT INFORMATION
  Report Type: 
  Country: None (occurrence: None)
  Receive Date: 20070316
  Receipt Date: 20070308
  Transmission Date: 20070707
  Serious: Yes (Life-Threatening, Hospitalization, Other)
  Sender: FDA-Public Use
  Company Number: DK-ABBOTT-07P-044-0360784-00

PATIENT
  Age: 34 Year
  Sex: Female
  Weight: 80 kg

DRUGS (6)
  1. REDUCTIL [Suspect]
     Indication: DRUG USE FOR UNKNOWN INDICATION
     Route: 048
  2. REDUCTIL [Suspect]
     Dates: start: 20070219
  3. ANTI-DEPRESSIVE [Suspect]
     Indication: DRUG USE FOR UNKNOWN INDICATION
  4. ANTI-DEPRESSIVE [Suspect]
     Dates: start: 20070219
  5. ANTI-PSYCHOTIC [Suspect]
     Indication: DRUG USE FOR UNKNOWN INDICATION
  6. ANTI-PSYCHOTIC [Suspect]
     Dates: start: 20070219

REACTIONS (3)
  - ANGIOEDEMA [None]
  - RENAL FAILURE [None]
  - SUICIDE ATTEMPT [None]
